FAERS Safety Report 7243450-0 (Version None)
Quarter: 2011Q1

REPORT INFORMATION
  Report Type: 
  Country: None (occurrence: None)
  Receive Date: 20110119
  Receipt Date: 20110119
  Transmission Date: 20110831
  Serious: Yes (Hospitalization)
  Sender: FDA-Public Use
  Company Number: None

PATIENT
  Sex: Female
  Weight: 60.54 kg

DRUGS (3)
  1. TAXOL [Suspect]
     Dosage: 581 MG
     Dates: end: 20101216
  2. ERBITUX [Suspect]
     Dosage: 1570 MG
     Dates: end: 20101230
  3. CARBOPLATIN [Suspect]
     Dosage: 1049 MG
     Dates: end: 20101216

REACTIONS (6)
  - ASTHENIA [None]
  - HYPOCALCAEMIA [None]
  - INFUSION [None]
  - MALAISE [None]
  - NAUSEA [None]
  - DIARRHOEA [None]
